FAERS Safety Report 17103135 (Version 1)
Quarter: 2019Q4

REPORT INFORMATION
  Report Type: Report from Study
  Country: None (occurrence: CA)
  Receive Date: 20191203
  Receipt Date: 20191203
  Transmission Date: 20200122
  Serious: Yes (Other)
  Sender: FDA-Public Use
  Company Number: CA-ABBVIE-19K-028-2675483-00

PATIENT
  Age: 53 Year
  Sex: Male

DRUGS (2)
  1. VOLTAREN [Concomitant]
     Active Substance: DICLOFENAC SODIUM
     Indication: ANKYLOSING SPONDYLITIS
     Route: 048
  2. HUMIRA [Suspect]
     Active Substance: ADALIMUMAB
     Indication: ANKYLOSING SPONDYLITIS
     Route: 058
     Dates: start: 20120302

REACTIONS (6)
  - Dust allergy [Not Recovered/Not Resolved]
  - Eye pruritus [Not Recovered/Not Resolved]
  - Lymphocytosis [Recovering/Resolving]
  - Nasal congestion [Not Recovered/Not Resolved]
  - Perfume sensitivity [Not Recovered/Not Resolved]
  - Sinus congestion [Not Recovered/Not Resolved]

NARRATIVE: CASE EVENT DATE: 20140113
